FAERS Safety Report 24619484 (Version 1)
Quarter: 2024Q4

REPORT INFORMATION
  Report Type: Spontaneous
  Country: US (occurrence: US)
  Receive Date: 20241114
  Receipt Date: 20241114
  Transmission Date: 20250114
  Serious: No
  Sender: CURRAX PHARMACEUTICALS
  Company Number: BHCAE-2024-0024

PATIENT
  Sex: Female

DRUGS (3)
  1. CONTRAVE [Suspect]
     Active Substance: BUPROPION HYDROCHLORIDE\NALTREXONE HYDROCHLORIDE
     Indication: Product used for unknown indication
     Dosage: STRENGTH: 8/90 MG, 1 TAB (FIRST WEEK)
     Route: 048
     Dates: start: 202401, end: 202401
  2. CONTRAVE [Suspect]
     Active Substance: BUPROPION HYDROCHLORIDE\NALTREXONE HYDROCHLORIDE
     Dosage: STRENGTH: 8/90 MG, UNKNOWN DOSE AND FREQUENCY (TREATMENT RESTARTED)
     Route: 048
     Dates: start: 20240122
  3. IUD NOS [Concomitant]
     Active Substance: COPPER OR LEVONORGESTREL
     Indication: Product used for unknown indication
     Dosage: UNK
     Route: 015

REACTIONS (1)
  - Vaginal haemorrhage [Unknown]

NARRATIVE: CASE EVENT DATE: 20240101
